FAERS Safety Report 7717371-0 (Version None)
Quarter: 2011Q3

REPORT INFORMATION
  Report Type: 
  Country: None (occurrence: None)
  Receive Date: 20110830
  Receipt Date: 20110823
  Transmission Date: 20111222
  Serious: Yes (Hospitalization)
  Sender: FDA-Public Use
  Company Number: US-JNJFOC-20110808872

PATIENT
  Sex: Male
  Weight: 44.2 kg

DRUGS (10)
  1. MIRALAX [Concomitant]
  2. HUMIRA [Concomitant]
  3. GROWTH HORMONE [Concomitant]
  4. VITAMIN D [Concomitant]
  5. OMEPRAZOLE [Concomitant]
  6. REMICADE [Suspect]
     Indication: INFLAMMATORY BOWEL DISEASE
     Route: 042
     Dates: start: 20090819, end: 20091214
  7. CALCIUM CARBONATE [Concomitant]
  8. METHOTREXATE [Concomitant]
  9. FOLIC ACID [Concomitant]
  10. MULTI-VITAMINS [Concomitant]

REACTIONS (1)
  - CROHN'S DISEASE [None]
